FAERS Safety Report 16062205 (Version 2)
Quarter: 2019Q2

REPORT INFORMATION
  Report Type: Spontaneous
  Country: AU (occurrence: AU)
  Receive Date: 20190312
  Receipt Date: 20190402
  Transmission Date: 20190711
  Serious: Yes (Other)
  Sender: FDA-Public Use
  Company Number: AU-ABBVIE-19S-008-2699822-00

PATIENT
  Age: 39 Year
  Sex: Female

DRUGS (1)
  1. TESTOSTERONE. [Suspect]
     Active Substance: TESTOSTERONE
     Indication: PRODUCT USED FOR UNKNOWN INDICATION
     Route: 065

REACTIONS (6)
  - Mood altered [Unknown]
  - Hair growth abnormal [Unknown]
  - Blood testosterone increased [Unknown]
  - Accidental overdose [Unknown]
  - Epiphyses premature fusion [Unknown]
  - Accidental exposure to product [Unknown]
